FAERS Safety Report 25089878 (Version 1)
Quarter: 2025Q1

REPORT INFORMATION
  Report Type: Spontaneous
  Country: US (occurrence: None)
  Receive Date: 20250317
  Receipt Date: 20250317
  Transmission Date: 20250409
  Serious: Yes (Hospitalization)
  Sender: FDA-CTU
  Company Number: None

PATIENT
  Age: 64 Year
  Sex: Male

DRUGS (2)
  1. MEKINIST [Suspect]
     Active Substance: TRAMETINIB DIMETHYL SULFOXIDE
     Dates: start: 20250108, end: 20250317
  2. TAFINLAR [Suspect]
     Active Substance: DABRAFENIB MESYLATE
     Dates: start: 20250108, end: 20250317

REACTIONS (4)
  - Diarrhoea [None]
  - Vomiting [None]
  - Pyrexia [None]
  - Atrial fibrillation [None]

NARRATIVE: CASE EVENT DATE: 20250317
